FAERS Safety Report 25883353 (Version 1)
Quarter: 2025Q4

REPORT INFORMATION
  Report Type: Spontaneous
  Country: US (occurrence: US)
  Receive Date: 20251006
  Receipt Date: 20251006
  Transmission Date: 20260117
  Serious: Yes (Other)
  Sender: COOPERSURGICAL
  Company Number: US-COOPERSURGICAL, INC.-2025CPS007094

PATIENT
  Age: 31 Year
  Sex: Female
  Weight: 82.993 kg

DRUGS (1)
  1. PARAGARD T 380A [Suspect]
     Active Substance: COPPER
     Indication: Contraception
     Dosage: UNK
     Route: 015
     Dates: start: 20140114

REACTIONS (5)
  - Cervical dysplasia [Unknown]
  - Menstruation irregular [Recovered/Resolved]
  - Intermenstrual bleeding [Unknown]
  - Device dislocation [Not Recovered/Not Resolved]
  - Off label use [Unknown]

NARRATIVE: CASE EVENT DATE: 20140101
